FAERS Safety Report 18072285 (Version 1)
Quarter: 2020Q3

REPORT INFORMATION
  Report Type: Spontaneous
  Country: US (occurrence: US)
  Receive Date: 20200726
  Receipt Date: 20200726
  Transmission Date: 20201103
  Serious: No
  Sender: FDA-Public Use
  Company Number: None

PATIENT
  Age: 71 Year
  Sex: Female
  Weight: 69.3 kg

DRUGS (1)
  1. INTRAROSA [Suspect]
     Active Substance: PRASTERONE
     Indication: MENOPAUSE
     Dosage: ?          QUANTITY:14 SUPPOSITORY(IES);?
     Route: 067
     Dates: start: 20200608, end: 20200726

REACTIONS (1)
  - Lymphadenopathy [None]

NARRATIVE: CASE EVENT DATE: 20200715
